FAERS Safety Report 10867809 (Version 2)
Quarter: 2017Q3

REPORT INFORMATION
  Report Type: Report from Study
  Country: US (occurrence: US)
  Receive Date: 20150225
  Receipt Date: 20170926
  Transmission Date: 20171127
  Serious: No
  Sender: FDA-Public Use
  Company Number: US-009507513-1502USA007660

PATIENT
  Sex: Female

DRUGS (2)
  1. JANUVIA [Suspect]
     Active Substance: SITAGLIPTIN PHOSPHATE
     Dosage: UNK
     Route: 048
  2. JANUVIA [Suspect]
     Active Substance: SITAGLIPTIN PHOSPHATE
     Indication: DIABETES MELLITUS
     Dosage: 100 MG, UNK
     Route: 048
     Dates: start: 2006, end: 201408

REACTIONS (6)
  - Circumstance or information capable of leading to device use error [Unknown]
  - Expired product administered [Unknown]
  - Wrong technique in product usage process [Unknown]
  - Fear of disease [Unknown]
  - Blood glucose increased [Unknown]
  - No adverse event [Unknown]
